FAERS Safety Report 4782688-9 (Version None)
Quarter: 2005Q3

REPORT INFORMATION
  Report Type: 
  Country: None (occurrence: None)
  Receive Date: 20050929
  Receipt Date: 20050721
  Transmission Date: 20060218
  Serious: No
  Sender: FDA-Public Use
  Company Number: 411661

PATIENT
  Age: 80 Year
  Sex: Male

DRUGS (5)
  1. COREG [Suspect]
     Dosage: 3.125MG TWICE PER DAY
     Route: 048
  2. POTASSIUM [Suspect]
  3. MUCINEX [Suspect]
  4. TYLENOL (CAPLET) [Suspect]
     Route: 048
  5. LASIX [Concomitant]

REACTIONS (2)
  - PRURITUS [None]
  - URTICARIA [None]
